FAERS Safety Report 7561183-8 (Version None)
Quarter: 2011Q2

REPORT INFORMATION
  Report Type: 
  Country: None (occurrence: None)
  Receive Date: 20110621
  Receipt Date: 20110223
  Transmission Date: 20111010
  Serious: No
  Sender: FDA-Public Use
  Company Number: US-ASTRAZENECA-2011SE03147

PATIENT
  Age: 86 Year
  Sex: Female

DRUGS (3)
  1. PULMICORT FLEXHALER [Suspect]
     Indication: ASTHMA
     Route: 055
  2. SINGULAIR [Concomitant]
  3. VERPAMIL HCL [Concomitant]

REACTIONS (4)
  - NASOPHARYNGITIS [None]
  - COUGH [None]
  - DRUG DOSE OMISSION [None]
  - WHEEZING [None]
